FAERS Safety Report 16222333 (Version 2)
Quarter: 2019Q2

REPORT INFORMATION
  Report Type: Spontaneous
  Country: ZA (occurrence: ZA)
  Receive Date: 20190422
  Receipt Date: 20190425
  Transmission Date: 20190711
  Serious: Yes (Hospitalization)
  Sender: FDA-Public Use
  Company Number: ZA-TEVA-2019-ZA-1040123

PATIENT
  Age: 73 Year
  Sex: Female

DRUGS (2)
  1. LINEZOLID TEVA 600MG [Suspect]
     Active Substance: LINEZOLID
     Indication: MULTIPLE-DRUG RESISTANCE
     Dosage: 2 DOSAGE FORMS DAILY;
     Route: 048
     Dates: start: 20190329
  2. LINEZOLID TEVA 600MG [Suspect]
     Active Substance: LINEZOLID
     Indication: STAPHYLOCOCCAL INFECTION

REACTIONS (1)
  - Hypersensitivity [Not Recovered/Not Resolved]

NARRATIVE: CASE EVENT DATE: 201904
